FAERS Safety Report 23693521 (Version 1)
Quarter: 2024Q2

REPORT INFORMATION
  Report Type: Spontaneous
  Country: US (occurrence: US)
  Receive Date: 20240401
  Receipt Date: 20240401
  Transmission Date: 20240715
  Serious: No
  Sender: FDA-Public Use
  Company Number: US-ABBVIE-5699745

PATIENT
  Sex: Female

DRUGS (4)
  1. UBRELVY [Suspect]
     Active Substance: UBROGEPANT
     Indication: Maternal exposure timing unspecified
     Dosage: FORM STRENGTH : 100 MILLIGRAM? FREQUENCY TEXT: PRN, THEN EVERY 2 HOURS
     Route: 064
     Dates: start: 20210525, end: 20210702
  2. METRONIDAZOLE [Concomitant]
     Active Substance: METRONIDAZOLE
     Indication: Maternal exposure timing unspecified
     Dosage: .75% 5 GRAMS?FREQUENCY TEXT: ONCE DAILY FOR 10 DAYS
     Route: 064
     Dates: start: 20211216, end: 20211225
  3. DESVENLAFAXINE [Concomitant]
     Active Substance: DESVENLAFAXINE
     Indication: Maternal exposure timing unspecified
     Dosage: 100 MG
     Route: 064
     Dates: start: 20210525, end: 20210702
  4. AJOVY [Suspect]
     Active Substance: FREMANEZUMAB-VFRM
     Indication: Maternal exposure timing unspecified
     Dosage: 225MG
     Route: 064
     Dates: start: 20200910, end: 20210702

REACTIONS (3)
  - Nervous system disorder [Recovered/Resolved]
  - Hypotonia [Recovered/Resolved with Sequelae]
  - Foetal exposure during pregnancy [Unknown]

NARRATIVE: CASE EVENT DATE: 20220130
